FAERS Safety Report 10164636 (Version 1)
Quarter: 2014Q2

REPORT INFORMATION
  Report Type: Spontaneous
  Country: US (occurrence: US)
  Receive Date: 20140510
  Receipt Date: 20140510
  Transmission Date: 20141212
  Serious: No
  Sender: FDA-Public Use
  Company Number: US-BRISTOL-MYERS SQUIBB COMPANY-20133419

PATIENT
  Age: 74 Year
  Sex: Male
  Weight: 124.71 kg

DRUGS (7)
  1. BYDUREON [Suspect]
     Indication: TYPE 2 DIABETES MELLITUS
     Route: 058
     Dates: start: 20140110
  2. GLIMEPIRIDE [Concomitant]
  3. ATORVASTATIN [Concomitant]
  4. LISINOPRIL [Concomitant]
  5. CENTRUM SILVER [Concomitant]
  6. ASA [Concomitant]
  7. VIAGRA [Concomitant]

REACTIONS (1)
  - Musculoskeletal stiffness [Recovering/Resolving]
